FAERS Safety Report 14073839 (Version 2)
Quarter: 2018Q1

REPORT INFORMATION
  Report Type: Spontaneous
  Country: IT (occurrence: IT)
  Receive Date: 20171011
  Receipt Date: 20180308
  Transmission Date: 20180508
  Serious: Yes (Hospitalization)
  Sender: FDA-Public Use
  Company Number: IT-PFIZER INC-2017435370

PATIENT
  Age: 50 Year
  Sex: Female

DRUGS (6)
  1. RELPAX [Suspect]
     Active Substance: ELETRIPTAN HYDROBROMIDE
     Indication: HEADACHE
     Dosage: UNK
     Dates: start: 20170313, end: 20170913
  2. VENLAFAXINE [Concomitant]
     Active Substance: VENLAFAXINE HYDROCHLORIDE
  3. INDOXEN [Suspect]
     Active Substance: INDOMETHACIN
     Indication: HEADACHE
     Dosage: 40 DF, MONTHLY
     Route: 048
     Dates: start: 20160313, end: 20170913
  4. NEBIVOLOL. [Concomitant]
     Active Substance: NEBIVOLOL
  5. STILNOX [Concomitant]
     Active Substance: ZOLPIDEM TARTRATE
  6. LEXOTAN [Concomitant]
     Active Substance: BROMAZEPAM

REACTIONS (4)
  - Condition aggravated [Recovering/Resolving]
  - Headache [Recovering/Resolving]
  - Drug abuse [Recovering/Resolving]
  - Hypertension [Recovering/Resolving]

NARRATIVE: CASE EVENT DATE: 20170913
